FAERS Safety Report 11742003 (Version 1)
Quarter: 2015Q4

REPORT INFORMATION
  Report Type: Spontaneous
  Country: US (occurrence: None)
  Receive Date: 20151113
  Receipt Date: 20151113
  Transmission Date: 20160304
  Serious: No
  Sender: FDA-Public Use
  Company Number: None

PATIENT
  Age: 68 Year
  Sex: Female
  Weight: 83.01 kg

DRUGS (9)
  1. ISOSORBIDE. [Concomitant]
     Active Substance: ISOSORBIDE
  2. ALTACE [Concomitant]
     Active Substance: RAMIPRIL
  3. ZOLOFT [Concomitant]
     Active Substance: SERTRALINE HYDROCHLORIDE
  4. PANTOPRAZOLE [Concomitant]
     Active Substance: PANTOPRAZOLE SODIUM
  5. ZOCOR [Concomitant]
     Active Substance: SIMVASTATIN
  6. TERBINAFINE HCL 250 MG HAR [Suspect]
     Active Substance: TERBINAFINE HYDROCHLORIDE
     Indication: ONYCHOMYCOSIS
     Route: 048
     Dates: start: 20150901, end: 20151102
  7. LOPRESSOR [Concomitant]
     Active Substance: METOPROLOL TARTRATE
  8. ALIGN [Concomitant]
     Active Substance: BIFIDOBACTERIUM LONGUM SUBSP. INFANTIS
  9. ALLEGRA [Concomitant]
     Active Substance: FEXOFENADINE HYDROCHLORIDE

REACTIONS (6)
  - Feeling abnormal [None]
  - Sensation of foreign body [None]
  - Asthenia [None]
  - Dysgeusia [None]
  - Weight decreased [None]
  - Quality of life decreased [None]

NARRATIVE: CASE EVENT DATE: 20151110
